FAERS Safety Report 7385798-5 (Version None)
Quarter: 2011Q1

REPORT INFORMATION
  Report Type: 
  Country: None (occurrence: None)
  Receive Date: 20110331
  Receipt Date: 20110323
  Transmission Date: 20110831
  Serious: Yes (Other)
  Sender: FDA-Public Use
  Company Number: DK-BAYER-2011-021953

PATIENT
  Sex: Female

DRUGS (1)
  1. MIRENA [Suspect]
     Indication: PRODUCT USED FOR UNKNOWN INDICATION
     Dosage: DAILY DOSE 25 MCG/24HR
     Route: 015
     Dates: start: 20110203, end: 20110309

REACTIONS (6)
  - VAGINAL HAEMORRHAGE [None]
  - STREPTOCOCCAL INFECTION [None]
  - OROPHARYNGEAL PAIN [None]
  - PYREXIA [None]
  - MYALGIA [None]
  - VAGINAL DISCHARGE [None]
